FAERS Safety Report 4993239-8 (Version None)
Quarter: 2006Q1

REPORT INFORMATION
  Report Type: 
  Country: None (occurrence: None)
  Receive Date: 20060314
  Receipt Date: 20050208
  Transmission Date: 20060701
  Serious: Yes (Other)
  Sender: FDA-Public Use
  Company Number: 200510571BCC

PATIENT
  Age: 63 Year
  Sex: Female
  Weight: 62.1428 kg

DRUGS (3)
  1. ALEVE (CAPLET) [Suspect]
     Indication: BURSITIS
     Dosage: 440-1320 MG, QD, ORAL
     Route: 048
     Dates: start: 20040101, end: 20040701
  2. CENTRUM SILVER [Concomitant]
  3. ECOTRIN [Concomitant]

REACTIONS (1)
  - BLOOD URINE PRESENT [None]
